FAERS Safety Report 17816495 (Version 2)
Quarter: 2021Q1

REPORT INFORMATION
  Report Type: Spontaneous
  Country: US (occurrence: US)
  Receive Date: 20200522
  Receipt Date: 20210128
  Transmission Date: 20210419
  Serious: Yes (Hospitalization, Other)
  Sender: FDA-Public Use
  Company Number: US-PFIZER INC-2020202105

PATIENT
  Age: 48 Year
  Sex: Female

DRUGS (2)
  1. INLYTA [Suspect]
     Active Substance: AXITINIB
     Dosage: 5 MG
     Dates: start: 20190715
  2. INLYTA [Suspect]
     Active Substance: AXITINIB
     Dosage: 5 MG
     Dates: start: 20200520, end: 20210102

REACTIONS (5)
  - Cellulitis [Unknown]
  - Blister [Unknown]
  - Swelling [Unknown]
  - Pruritus [Unknown]
  - Neoplasm progression [Unknown]
